FAERS Safety Report 6987165-2 (Version None)
Quarter: 2010Q3

REPORT INFORMATION
  Report Type: 
  Country: None (occurrence: None)
  Receive Date: 20100916
  Receipt Date: 20100906
  Transmission Date: 20110219
  Serious: Yes (Hospitalization)
  Sender: FDA-Public Use
  Company Number: FR-PFIZER INC-2010112108

PATIENT
  Age: 23 Year
  Sex: Male

DRUGS (3)
  1. CHAMPIX [Suspect]
     Dosage: 0.5 MG, 2X/DAY
     Route: 048
     Dates: start: 20100712, end: 20100715
  2. KEPPRA [Concomitant]
     Indication: EPILEPSY
     Dosage: 500 MG, 4X/DAY
     Route: 048
  3. TRILEPTAL [Concomitant]
     Indication: EPILEPSY
     Dosage: 600 MG, 2X/DAY
     Route: 048

REACTIONS (4)
  - AGITATION [None]
  - DEPRESSED LEVEL OF CONSCIOUSNESS [None]
  - ELECTROCARDIOGRAM T WAVE INVERSION [None]
  - TREMOR [None]
